FAERS Safety Report 22266024 (Version 2)
Quarter: 2023Q2

REPORT INFORMATION
  Report Type: Spontaneous
  Country: CA (occurrence: CA)
  Receive Date: 20230428
  Receipt Date: 20230613
  Transmission Date: 20230721
  Serious: Yes (Hospitalization)
  Sender: FDA-Public Use
  Company Number: CA-TEVA-2023-CA-2881448

PATIENT
  Age: 87 Year
  Sex: Female

DRUGS (4)
  1. FULVESTRANT [Suspect]
     Active Substance: FULVESTRANT
     Indication: Product used for unknown indication
     Dosage: 500MG
     Route: 065
     Dates: start: 20230209
  2. FULVESTRANT [Suspect]
     Active Substance: FULVESTRANT
     Dosage: 500MG
     Route: 065
     Dates: start: 20230223
  3. FULVESTRANT [Suspect]
     Active Substance: FULVESTRANT
     Dosage: 500MG
     Route: 065
     Dates: start: 20230309
  4. FULVESTRANT [Suspect]
     Active Substance: FULVESTRANT
     Dosage: 210 MG
     Route: 065
     Dates: start: 20230406

REACTIONS (6)
  - Dyspnoea [Unknown]
  - Cough [Unknown]
  - Cyanosis [Unknown]
  - Chest discomfort [Unknown]
  - Oxygen saturation decreased [Unknown]
  - Respiratory rate decreased [Unknown]

NARRATIVE: CASE EVENT DATE: 20230101
